FAERS Safety Report 7693935-8 (Version None)
Quarter: 2011Q3

REPORT INFORMATION
  Report Type: 
  Country: None (occurrence: None)
  Receive Date: 20110819
  Receipt Date: 20110816
  Transmission Date: 20111222
  Serious: Yes (Death, Other)
  Sender: FDA-Public Use
  Company Number: MX-SANOFI-AVENTIS-2011SA052526

PATIENT
  Age: 68 Year
  Sex: Female

DRUGS (6)
  1. ENALAPRIL MALEATE [Concomitant]
     Route: 048
     Dates: start: 19950101, end: 20110502
  2. OMEPRAZOLE [Concomitant]
     Route: 048
     Dates: end: 20110502
  3. METFORMIN HCL [Concomitant]
     Route: 048
     Dates: start: 20060101, end: 20110502
  4. RANITIDINE [Concomitant]
     Route: 048
     Dates: end: 20110502
  5. ASPIRIN [Concomitant]
     Route: 048
     Dates: start: 20060101, end: 20110502
  6. INSULIN GLARGINE [Suspect]
     Indication: TYPE 2 DIABETES MELLITUS
     Route: 058
     Dates: start: 20060101, end: 20110502

REACTIONS (4)
  - URINARY TRACT INFECTION [None]
  - RENAL FAILURE ACUTE [None]
  - RENAL PAIN [None]
  - MALAISE [None]
